FAERS Safety Report 16963508 (Version 1)
Quarter: 2019Q4

REPORT INFORMATION
  Report Type: Spontaneous
  Country: US (occurrence: US)
  Receive Date: 20191025
  Receipt Date: 20191025
  Transmission Date: 20200122
  Serious: No
  Sender: FDA-Public Use
  Company Number: US-TEVA-2019-US-1129224

PATIENT
  Sex: Male

DRUGS (1)
  1. TEVA CLOZAPINE ORALLY DISINTEGRATING TABLETS [Suspect]
     Active Substance: CLOZAPINE
     Route: 048

REACTIONS (1)
  - Therapeutic product effect decreased [Unknown]
